FAERS Safety Report 6501730 (Version 3)
Quarter: 2014Q3

REPORT INFORMATION
  Report Type: Spontaneous
  Country: JP (occurrence: JP)
  Receive Date: 20071214
  Receipt Date: 20140728
  Transmission Date: 20150326
  Serious: Yes (Hospitalization, Other)
  Sender: FDA-Public Use
  Company Number: JP-RANBAXY-2007US-11593

PATIENT

DRUGS (5)
  1. GLIBENCLAMIDE [Concomitant]
     Active Substance: GLYBURIDE
     Indication: DIABETES MELLITUS
     Dosage: 1.25 MG, QD
     Route: 048
  2. ISOPTIN SR [Suspect]
     Active Substance: VERAPAMIL HYDROCHLORIDE
     Indication: PRODUCT USED FOR UNKNOWN INDICATION
     Dosage: 120 MG, UNK
     Route: 048
     Dates: start: 200708, end: 20071030
  3. UBIDECARENONE [Concomitant]
     Active Substance: UBIDECARENONE
     Indication: PRODUCT USED FOR UNKNOWN INDICATION
     Dosage: 30 MG, QD
     Route: 048
     Dates: start: 200708
  4. SENNA EXTRACT [Concomitant]
     Indication: CONSTIPATION
     Dosage: 80 MG, QD BEFORE BEDTIME
     Route: 048
  5. TRIAZOLAM. [Interacting]
     Active Substance: TRIAZOLAM
     Indication: INSOMNIA
     Dosage: 0.25 MG, BEFORE BEDTIME
     Route: 048
     Dates: end: 20071030

REACTIONS (12)
  - Toxicity to various agents [None]
  - Bradycardia [Recovered/Resolved]
  - Nodal rhythm [Recovered/Resolved]
  - Electrocardiogram P wave abnormal [None]
  - Sinus bradycardia [None]
  - Vomiting [Recovered/Resolved]
  - Sinus arrest [None]
  - Sinoatrial block [None]
  - Malaise [Recovered/Resolved]
  - Sick sinus syndrome [Recovered/Resolved]
  - Drug interaction [Recovered/Resolved]
  - Cardiac failure [Recovered/Resolved]

NARRATIVE: CASE EVENT DATE: 20071030
